FAERS Safety Report 6433221-7 (Version None)
Quarter: 2009Q4

REPORT INFORMATION
  Report Type: 
  Country: None (occurrence: None)
  Receive Date: 20091109
  Receipt Date: 20091028
  Transmission Date: 20100525
  Serious: Yes (Other)
  Sender: FDA-Public Use
  Company Number: US-PFIZER INC-2009281546

PATIENT
  Sex: Female

DRUGS (7)
  1. DILANTIN-125 [Suspect]
     Indication: CONVULSION
     Dosage: 200 MG, 2X/DAY
     Dates: start: 20030101
  2. REMERON [Concomitant]
  3. LEVOTHYROXINE SODIUM [Concomitant]
  4. PRILOSEC [Concomitant]
  5. EXELON [Concomitant]
     Dosage: FREQUENCY: 2X/DAY,
  6. DARVON [Concomitant]
     Dosage: FREQUENCY: OCCASIONALLY,
     Dates: start: 20090918
  7. AMBIEN [Concomitant]
     Dates: end: 20090701

REACTIONS (3)
  - ANTICONVULSANT DRUG LEVEL DECREASED [None]
  - DECREASED APPETITE [None]
  - PETIT MAL EPILEPSY [None]
